FAERS Safety Report 15271189 (Version 3)
Quarter: 2018Q3

REPORT INFORMATION
  Report Type: Spontaneous
  Country: CO (occurrence: CO)
  Receive Date: 20180813
  Receipt Date: 20180926
  Transmission Date: 20181010
  Serious: Yes (Death, Hospitalization)
  Sender: FDA-Public Use
  Company Number: CO-AMGEN-COLSP2018047691

PATIENT
  Age: 64 Year
  Sex: Female

DRUGS (2)
  1. ENBREL [Suspect]
     Active Substance: ETANERCEPT
     Indication: RHEUMATOID ARTHRITIS
     Dosage: 50 MG, QWK
     Route: 058
     Dates: start: 2012
  2. ENBREL [Suspect]
     Active Substance: ETANERCEPT
     Dosage: 50 MG, UNK
     Route: 058

REACTIONS (3)
  - Localised infection [Fatal]
  - Cellulitis [Not Recovered/Not Resolved]
  - Infection [Fatal]

NARRATIVE: CASE EVENT DATE: 201803
